FAERS Safety Report 11100080 (Version 3)
Quarter: 2015Q2

REPORT INFORMATION
  Report Type: Spontaneous
  Country: DE (occurrence: DE)
  Receive Date: 20150508
  Receipt Date: 20150629
  Transmission Date: 20150821
  Serious: Yes (Other)
  Sender: FDA-Public Use
  Company Number: PHHY2015DE052055

PATIENT
  Sex: Male

DRUGS (1)
  1. TASIGNA [Suspect]
     Active Substance: NILOTINIB
     Indication: CHRONIC MYELOID LEUKAEMIA
     Dosage: 600 MG, QD
     Route: 065
     Dates: start: 201402

REACTIONS (12)
  - Hypersensitivity [Unknown]
  - Abdominal discomfort [Unknown]
  - Chest pain [Unknown]
  - Headache [Unknown]
  - Blister [Unknown]
  - Erythema [Unknown]
  - Rash pustular [Unknown]
  - Tension [Unknown]
  - Dyspepsia [Unknown]
  - Herpes zoster [Unknown]
  - Pruritus [Unknown]
  - Dyspnoea [Unknown]

NARRATIVE: CASE EVENT DATE: 20150426
